FAERS Safety Report 8312813 (Version 4)
Quarter: 2016Q1

REPORT INFORMATION
  Report Type: Spontaneous
  Country: US (occurrence: US)
  Receive Date: 20111227
  Receipt Date: 20160226
  Transmission Date: 20160526
  Serious: Yes (Other)
  Sender: FDA-Public Use
  Company Number: US-ASTRAZENECA-2011SE76172

PATIENT
  Age: 794 Month
  Sex: Female
  Weight: 95.3 kg

DRUGS (10)
  1. OMEPRAZOLE. [Suspect]
     Active Substance: OMEPRAZOLE
     Indication: ABDOMINAL DISCOMFORT
     Route: 048
     Dates: start: 2012
  2. GABAPENTIN. [Concomitant]
     Active Substance: GABAPENTIN
     Indication: HYPOTONIA
     Dates: start: 2013
  3. CRESTOR [Suspect]
     Active Substance: ROSUVASTATIN CALCIUM
     Indication: BLOOD CHOLESTEROL ABNORMAL
     Route: 048
     Dates: start: 2006, end: 201601
  4. LIPITOR [Concomitant]
     Active Substance: ATORVASTATIN CALCIUM
  5. OXYBUTYNIN [Concomitant]
     Active Substance: OXYBUTYNIN
     Indication: BLADDER DISORDER
     Dates: start: 2013
  6. RANITIDINE [Concomitant]
     Active Substance: RANITIDINE\RANITIDINE HYDROCHLORIDE
     Indication: DYSPEPSIA
     Dates: start: 2012
  7. CRESTOR [Suspect]
     Active Substance: ROSUVASTATIN CALCIUM
     Indication: BLOOD CHOLESTEROL ABNORMAL
     Route: 048
  8. ZOCOR [Concomitant]
     Active Substance: SIMVASTATIN
  9. ALENDRONATE SODIUM. [Concomitant]
     Active Substance: ALENDRONATE SODIUM
     Indication: BONE DISORDER
  10. METOPROLOL TARTRATE. [Concomitant]
     Active Substance: METOPROLOL TARTRATE
     Indication: BLOOD PRESSURE ABNORMAL
     Dates: start: 2007

REACTIONS (11)
  - Nasopharyngitis [Unknown]
  - Glucose tolerance impaired [Unknown]
  - Cardiac disorder [Unknown]
  - Laryngitis [Not Recovered/Not Resolved]
  - Drug dose omission [Unknown]
  - Blood cholesterol increased [Unknown]
  - Pyrexia [Unknown]
  - Vascular occlusion [Unknown]
  - Malaise [Unknown]
  - Bronchitis [Unknown]
  - Tonsillitis [Not Recovered/Not Resolved]

NARRATIVE: CASE EVENT DATE: 201512
